FAERS Safety Report 17016576 (Version 5)
Quarter: 2020Q1

REPORT INFORMATION
  Report Type: Spontaneous
  Country: US (occurrence: US)
  Receive Date: 20191111
  Receipt Date: 20200306
  Transmission Date: 20200409
  Serious: Yes (Hospitalization, Other)
  Sender: FDA-Public Use
  Company Number: US-PFIZER INC-2019438881

PATIENT
  Age: 71 Year
  Sex: Male

DRUGS (1)
  1. SUTENT [Suspect]
     Active Substance: SUNITINIB MALATE
     Indication: RENAL CANCER
     Dosage: 37.5 MG, CYCLIC (DAILY 2 WEEKS ON THEN 1 WEEK OFF)
     Route: 048

REACTIONS (6)
  - Bacterial infection [Unknown]
  - Neoplasm progression [Unknown]
  - Cyst [Unknown]
  - Feeling abnormal [Unknown]
  - Infection [Unknown]
  - Rectal abscess [Unknown]
